FAERS Safety Report 7126119-2 (Version None)
Quarter: 2010Q4

REPORT INFORMATION
  Report Type: 
  Country: None (occurrence: None)
  Receive Date: 20101129
  Receipt Date: 20101118
  Transmission Date: 20110411
  Serious: Yes (Hospitalization)
  Sender: FDA-Public Use
  Company Number: PE-JNJFOC-20101007875

PATIENT
  Age: 49 Year
  Sex: Female
  Weight: 57 kg

DRUGS (16)
  1. SIMPONI [Suspect]
     Indication: RHEUMATOID ARTHRITIS
     Dosage: 4 OF 6 DOSES IN SERIES
     Route: 058
  2. SIMPONI [Suspect]
     Route: 058
  3. METHOTREXATE [Concomitant]
     Indication: RHEUMATOID ARTHRITIS
     Route: 058
  4. PREDNISONE [Concomitant]
     Indication: RHEUMATOID ARTHRITIS
     Route: 048
  5. MELOXICAM [Concomitant]
     Indication: RHEUMATOID ARTHRITIS
     Route: 048
  6. PANTOPRAZOLE [Concomitant]
     Indication: ABDOMINAL PAIN UPPER
     Route: 048
  7. FOLIC ACID [Concomitant]
     Indication: RHEUMATOID ARTHRITIS
     Route: 048
  8. ALENDRONATE SODIUM [Concomitant]
     Indication: OSTEOPOROSIS
     Route: 048
  9. CALCIUM AND VITAMIN D [Concomitant]
     Indication: OSTEOPOROSIS
     Route: 048
  10. EZETIMIBE/SIMVASTATIN [Concomitant]
     Indication: DYSLIPIDAEMIA
     Route: 048
  11. AZITHROMYCIN [Concomitant]
     Indication: NASOPHARYNGITIS
     Route: 048
  12. CELECOXIB [Concomitant]
     Indication: RHEUMATOID ARTHRITIS
     Route: 048
  13. MELOXICAM [Concomitant]
     Route: 048
  14. CEFTRIAXONE [Concomitant]
     Indication: NASOPHARYNGITIS
     Route: 048
  15. PARACETAMOL [Concomitant]
     Indication: RHEUMATOID ARTHRITIS
     Route: 048
  16. PARACETAMOL [Concomitant]
     Route: 048

REACTIONS (1)
  - THROMBOPHLEBITIS [None]
